FAERS Safety Report 6412527-1 (Version None)
Quarter: 2009Q4

REPORT INFORMATION
  Report Type: 
  Country: None (occurrence: None)
  Receive Date: 20091023
  Receipt Date: 20090622
  Transmission Date: 20100525
  Serious: No
  Sender: FDA-Public Use
  Company Number: US-BRISTOL-MYERS SQUIBB COMPANY-14687552

PATIENT

DRUGS (1)
  1. KENALOG-40 [Suspect]
     Dosage: 1ML VIALS, OTHER LOT # 8K38542, 9B46494 AND 8C41221

REACTIONS (2)
  - FLUSHING [None]
  - JOINT SWELLING [None]
